FAERS Safety Report 4648938-4 (Version None)
Quarter: 2005Q2

REPORT INFORMATION
  Report Type: 
  Country: None (occurrence: None)
  Receive Date: 20050427
  Receipt Date: 20050414
  Transmission Date: 20051028
  Serious: Yes (Other)
  Sender: FDA-Public Use
  Company Number: 2005038428

PATIENT
  Sex: Female

DRUGS (2)
  1. NEURONTIN [Suspect]
     Indication: ILL-DEFINED DISORDER
     Dates: start: 20040701
  2. NORVASC [Suspect]
     Indication: ILL-DEFINED DISORDER
     Dates: start: 20010101

REACTIONS (2)
  - CONVULSION [None]
  - HAEMORRHAGE [None]
